FAERS Safety Report 17980996 (Version 2)
Quarter: 2020Q3

REPORT INFORMATION
  Report Type: Spontaneous
  Country: JP (occurrence: JP)
  Receive Date: 20200704
  Receipt Date: 20200708
  Transmission Date: 20201103
  Serious: Yes (Other)
  Sender: FDA-Public Use
  Company Number: NVSC2020JP185650

PATIENT
  Age: 50 Year
  Sex: Male

DRUGS (3)
  1. PACLITAXEL. [Suspect]
     Active Substance: PACLITAXEL
     Indication: METASTASES TO LYMPH NODES
     Dosage: 80 MG/M2 (2 COURSES)
     Route: 065
  2. PACLITAXEL. [Suspect]
     Active Substance: PACLITAXEL
     Dosage: 100 MG/M2 (2 COURSES)
     Route: 065
  3. CARBOPLATIN. [Suspect]
     Active Substance: CARBOPLATIN
     Indication: METASTASES TO LYMPH NODES
     Dosage: AUC 2.5 (2 COURSES)
     Route: 065

REACTIONS (3)
  - Pneumonia aspiration [Unknown]
  - Product use in unapproved indication [Unknown]
  - Performance status decreased [Unknown]
